FAERS Safety Report 8101003-6 (Version None)
Quarter: 2012Q1

REPORT INFORMATION
  Report Type: 
  Country: None (occurrence: None)
  Receive Date: 20120129
  Receipt Date: 20111115
  Transmission Date: 20120608
  Serious: No
  Sender: FDA-Public Use
  Company Number: US-ABBOTT-11P-163-0874479-00

PATIENT
  Age: 37 Year
  Sex: Female

DRUGS (15)
  1. FOLIC ACID [Concomitant]
     Indication: PRODUCT USED FOR UNKNOWN INDICATION
  2. ARMODAFINIL [Concomitant]
     Indication: PRODUCT USED FOR UNKNOWN INDICATION
  3. PREDNISONE TAB [Concomitant]
     Indication: RHEUMATOID ARTHRITIS
     Dosage: 10 MG TID PRN
  4. METHOTREXATE [Concomitant]
     Indication: RHEUMATOID ARTHRITIS
     Dosage: 8 PILLS ONE TIME A WEEK
  5. CYMBALTA [Concomitant]
     Indication: ARTHRALGIA
     Dosage: 1 TABLET EVERY DAY
  6. IRON [Concomitant]
     Indication: PRODUCT USED FOR UNKNOWN INDICATION
  7. HUMIRA [Suspect]
     Indication: RHEUMATOID ARTHRITIS
  8. CALCIUM [Concomitant]
     Indication: PRODUCT USED FOR UNKNOWN INDICATION
  9. PLAQUENIL [Concomitant]
     Indication: RHEUMATOID ARTHRITIS
     Dosage: 2 TAB BID
  10. CYMBALTA [Concomitant]
     Indication: FIBROMYALGIA
  11. OMEPRAZOLE [Concomitant]
     Indication: PRODUCT USED FOR UNKNOWN INDICATION
     Dosage: 1 TABLET EVERY DAY
  12. DAYPRO [Concomitant]
     Indication: INFLAMMATION
  13. LORATADINE [Concomitant]
     Indication: SINUS DISORDER
     Dosage: 1 TAB ONE TIME A DAY
  14. DAYPRO [Concomitant]
     Indication: PAIN
  15. AMITRIPTYLINE HCL [Concomitant]
     Indication: SLEEP DISORDER THERAPY
     Dosage: 2 DOSES AT BEDTIME

REACTIONS (6)
  - INCREASED UPPER AIRWAY SECRETION [None]
  - APHONIA [None]
  - RHINORRHOEA [None]
  - FACIAL PAIN [None]
  - OROPHARYNGEAL PAIN [None]
  - HEADACHE [None]
